FAERS Safety Report 5467777-8 (Version None)
Quarter: 2007Q3

REPORT INFORMATION
  Report Type: 
  Country: None (occurrence: None)
  Receive Date: 20070814
  Receipt Date: 20070706
  Transmission Date: 20080115
  Serious: No
  Sender: FDA-Public Use
  Company Number: 200714987US

PATIENT
  Age: 54 Year
  Sex: Female

DRUGS (6)
  1. APIDRA [Suspect]
     Indication: TYPE 2 DIABETES MELLITUS
     Dosage: 17 U QID INJ
     Dates: start: 20060101
  2. LANTUS [Concomitant]
  3. LOPID [Concomitant]
  4. LYRICA [Concomitant]
  5. ESOMEPRAZOLE [Concomitant]
  6. LISINOPRIL [Concomitant]

REACTIONS (8)
  - BLISTER [None]
  - BLOOD PRESSURE DECREASED [None]
  - BRONCHITIS [None]
  - CHEST PAIN [None]
  - COUGH [None]
  - HYPERGLYCAEMIA [None]
  - RASH [None]
  - SCRATCH [None]
